FAERS Safety Report 18854672 (Version 1)
Quarter: 2021Q1

REPORT INFORMATION
  Report Type: Spontaneous
  Country: NL (occurrence: NL)
  Receive Date: 20210206
  Receipt Date: 20210206
  Transmission Date: 20210420
  Serious: Yes (Other)
  Sender: FDA-Public Use
  Company Number: NL-AUROBINDO-AUR-APL-2019-092433

PATIENT
  Age: 62 Year
  Sex: Male

DRUGS (3)
  1. VELCADE [Suspect]
     Active Substance: BORTEZOMIB
     Indication: PLASMA CELL MYELOMA
     Dosage: 2.5 MG, UNK, (DOSAGE FORM: LYOPHILIZED POWDER, CYCLE 1?4)
     Route: 058
     Dates: start: 20170530, end: 20170901
  2. THALIDOMIDE [Suspect]
     Active Substance: THALIDOMIDE
     Indication: PLASMA CELL MYELOMA
     Dosage: 100 MG, UNK, (DOSAGE FORM: UNSPECIFIED, CYCLE 1?4)
     Route: 048
     Dates: start: 20170530, end: 20170919
  3. DEXAMETHASON [Suspect]
     Active Substance: DEXAMETHASONE
     Indication: PLASMA CELL MYELOMA
     Dosage: UNK
     Route: 048
     Dates: start: 20170530, end: 20170919

REACTIONS (1)
  - Polyneuropathy [Recovered/Resolved with Sequelae]

NARRATIVE: CASE EVENT DATE: 20170925
